FAERS Safety Report 4809342-9 (Version None)
Quarter: 2005Q4

REPORT INFORMATION
  Report Type: 
  Country: None (occurrence: None)
  Receive Date: 20051021
  Receipt Date: 20020315
  Transmission Date: 20060501
  Serious: No
  Sender: FDA-Public Use
  Company Number: USA020312557

PATIENT
  Age: 37 Year
  Sex: Male

DRUGS (6)
  1. ZYPREXA [Suspect]
     Dosage: 10 MG/AT BEDTIME
     Dates: start: 19980301
  2. TRIZIVIR [Concomitant]
  3. ZOLOFT (SRTRALINE HYDROCHLORIDE) [Concomitant]
  4. D4T (STAVUDINE) [Concomitant]
  5. NEVIRAPINE [Concomitant]
  6. NELFINAVIR [Concomitant]

REACTIONS (2)
  - LYMPHOPENIA [None]
  - VIRAL LOAD INCREASED [None]
